FAERS Safety Report 21854722 (Version 2)
Quarter: 2023Q1

REPORT INFORMATION
  Report Type: Report from Study
  Country: BE (occurrence: BE)
  Receive Date: 20230112
  Receipt Date: 20230116
  Transmission Date: 20230418
  Serious: Yes (Hospitalization, Other)
  Sender: FDA-Public Use
  Company Number: BE-ABBVIE-4159873

PATIENT
  Sex: Male
  Weight: 120 kg

DRUGS (8)
  1. CARBIDOPA\LEVODOPA [Suspect]
     Active Substance: CARBIDOPA\LEVODOPA
     Indication: Parkinson^s disease
     Dosage: MD: 2.8 ML; CD: 1.6 ML/H; ED: 2.0 ML DURING 24 HOURS
     Route: 050
     Dates: start: 20221006, end: 20221017
  2. CARBIDOPA\LEVODOPA [Suspect]
     Active Substance: CARBIDOPA\LEVODOPA
     Route: 050
     Dates: start: 20140512
  3. CARBIDOPA\LEVODOPA [Suspect]
     Active Substance: CARBIDOPA\LEVODOPA
     Dosage: MD: 5.8 ML, CD: 1.8 ML/H, ED: 2.0 ML, NCD: 1.8 ML/H DURING 24 HOURS
     Route: 050
     Dates: start: 20221017, end: 20221206
  4. CARBIDOPA\LEVODOPA [Suspect]
     Active Substance: CARBIDOPA\LEVODOPA
     Route: 050
     Dates: start: 20221206, end: 20230109
  5. CARBIDOPA\LEVODOPA [Suspect]
     Active Substance: CARBIDOPA\LEVODOPA
     Dosage: CD: 1.8 ML/H DURING 24 HOURS
     Route: 050
     Dates: start: 20230109
  6. PRAMIPEXOLE [Concomitant]
     Active Substance: PRAMIPEXOLE
     Indication: Product used for unknown indication
     Dosage: 0.18 UNKNOWN
     Route: 065
  7. STALEVO [Concomitant]
     Active Substance: CARBIDOPA\ENTACAPONE\LEVODOPA
     Indication: Product used for unknown indication
     Dosage: FORM STRENGTH 150 UNKNOWN
     Route: 065
  8. BENSERAZIDE\LEVODOPA [Concomitant]
     Active Substance: BENSERAZIDE\LEVODOPA
     Indication: Product used for unknown indication
     Dosage: FORM STRENGTH:125 CAPSULE?FREQUENCY TEXT: IN THE EVENING
     Route: 065

REACTIONS (19)
  - Skin infection [Unknown]
  - Dyskinesia [Not Recovered/Not Resolved]
  - Bradykinesia [Not Recovered/Not Resolved]
  - Gait inability [Unknown]
  - Musculoskeletal stiffness [Not Recovered/Not Resolved]
  - Dysphagia [Not Recovered/Not Resolved]
  - Fatigue [Unknown]
  - Mobility decreased [Unknown]
  - Altered state of consciousness [Unknown]
  - Underdose [Not Recovered/Not Resolved]
  - Hospitalisation [Unknown]
  - Decubitus ulcer [Unknown]
  - Decubitus ulcer [Unknown]
  - Salivary hypersecretion [Unknown]
  - Unevaluable event [Unknown]
  - Oxygen saturation decreased [Unknown]
  - Bedridden [Unknown]
  - General physical health deterioration [Unknown]
  - Muscle rigidity [Unknown]
